FAERS Safety Report 16932573 (Version 1)
Quarter: 2019Q4

REPORT INFORMATION
  Report Type: Report from Study
  Country: IT (occurrence: IT)
  Receive Date: 20191017
  Receipt Date: 20191017
  Transmission Date: 20200122
  Serious: Yes (Other)
  Sender: FDA-Public Use
  Company Number: PHHY2013IT082266

PATIENT
  Age: 42 Year
  Sex: Male

DRUGS (2)
  1. SOLU-MEDROL [Concomitant]
     Active Substance: METHYLPREDNISOLONE SODIUM SUCCINATE
     Indication: MULTIPLE SCLEROSIS RELAPSE
     Dosage: 100 MG, QD
     Route: 065
     Dates: start: 20160225, end: 20160301
  2. GILENYA [Suspect]
     Active Substance: FINGOLIMOD HYDROCHLORIDE
     Indication: MULTIPLE SCLEROSIS
     Dosage: QD
     Route: 048
     Dates: start: 20120906

REACTIONS (7)
  - White blood cell count decreased [Unknown]
  - Hypercholesterolaemia [Unknown]
  - Malaise [Unknown]
  - Lymphocyte count decreased [Not Recovered/Not Resolved]
  - Visual field defect [Unknown]
  - Hypertransaminasaemia [Recovered/Resolved]
  - Alanine aminotransferase increased [Unknown]

NARRATIVE: CASE EVENT DATE: 20130108
